FAERS Safety Report 11521480 (Version 1)
Quarter: 2015Q3

REPORT INFORMATION
  Report Type: Spontaneous
  Country: HU (occurrence: HU)
  Receive Date: 20150918
  Receipt Date: 20150918
  Transmission Date: 20151125
  Serious: Yes (Other)
  Sender: FDA-Public Use
  Company Number: HU-AMGEN-HUNSP2015096104

PATIENT
  Age: 40 Year
  Sex: Female
  Weight: 74 kg

DRUGS (2)
  1. ENBREL [Suspect]
     Active Substance: ETANERCEPT
     Indication: ANKYLOSING SPONDYLITIS
     Dosage: UNK, WEEKLY
     Route: 065
     Dates: start: 201409
  2. IMURAN [Concomitant]
     Active Substance: AZATHIOPRINE
     Indication: CROHN^S DISEASE
     Dosage: 50 MG, 1.5 IN THE MORNING, 1 IN THE EVENING
     Dates: start: 2008

REACTIONS (11)
  - Arthralgia [Recovered/Resolved]
  - Small intestinal stenosis [Unknown]
  - Polyp [Unknown]
  - Biliary polyp [Unknown]
  - Nodule [Recovered/Resolved]
  - Pain in extremity [Recovered/Resolved]
  - Pulmonary mass [Unknown]
  - Cervical polyp [Unknown]
  - Joint swelling [Recovered/Resolved]
  - Peripheral swelling [Recovered/Resolved]
  - Back pain [Unknown]
